FAERS Safety Report 20245388 (Version 1)
Quarter: 2021Q4

REPORT INFORMATION
  Report Type: Report from Study
  Country: US (occurrence: US)
  Receive Date: 20211229
  Receipt Date: 20211229
  Transmission Date: 20220303
  Serious: Yes (Other)
  Sender: FDA-Public Use
  Company Number: US-JNJFOC-20211255988

PATIENT

DRUGS (1)
  1. REMICADE [Suspect]
     Active Substance: INFLIXIMAB
     Indication: Crohn^s disease
     Route: 042

REACTIONS (29)
  - Anal abscess [Unknown]
  - Cellulitis [Unknown]
  - Pneumonia [Unknown]
  - Optic neuritis [Unknown]
  - Pyelonephritis [Unknown]
  - Campylobacter gastroenteritis [Unknown]
  - Chlamydial infection [Unknown]
  - Bacteraemia [Unknown]
  - Vulval abscess [Unknown]
  - Lupus-like syndrome [Unknown]
  - CSF test abnormal [Unknown]
  - Actinic keratosis [Unknown]
  - Seborrhoeic dermatitis [Unknown]
  - Folliculitis [Unknown]
  - Conjunctivitis [Unknown]
  - Sinusitis [Unknown]
  - Pityriasis [Unknown]
  - Psoriasis [Unknown]
  - Infusion related reaction [Unknown]
  - Ear infection [Unknown]
  - Influenza [Unknown]
  - Subcutaneous abscess [Unknown]
  - Vulvovaginal candidiasis [Unknown]
  - Diarrhoea infectious [Unknown]
  - Gastroenteritis viral [Unknown]
  - Upper respiratory tract infection [Unknown]
  - Oral candidiasis [Unknown]
  - Arthralgia [Unknown]
  - Therapeutic response decreased [Unknown]
